FAERS Safety Report 4751200-2 (Version None)
Quarter: 2005Q3

REPORT INFORMATION
  Report Type: 
  Country: None (occurrence: None)
  Receive Date: 20050823
  Receipt Date: 20050823
  Transmission Date: 20060218
  Serious: Yes (Other)
  Sender: FDA-Public Use
  Company Number: None

PATIENT
  Sex: Male
  Weight: 110 kg

DRUGS (4)
  1. SPIRONOLACTONE [Suspect]
     Indication: PRECOCIOUS PUBERTY
     Dosage: 200 MG PO BID
     Route: 048
     Dates: start: 19981001, end: 20020801
  2. TESTOLACTONE [Suspect]
     Indication: PRECOCIOUS PUBERTY
     Dosage: 950 MG PO TID
     Route: 048
     Dates: start: 19981001, end: 20020801
  3. DESLORELIN [Suspect]
     Indication: PRECOCIOUS PUBERTY
     Dosage: 0.63 CC SQ DAILY
     Route: 058
     Dates: start: 20001101, end: 20021001
  4. RITALIN [Concomitant]

REACTIONS (3)
  - CARDIAC MURMUR [None]
  - INCREASED VENTRICULAR AFTERLOAD [None]
  - VENTRICULAR HYPERTROPHY [None]
